FAERS Safety Report 13706840 (Version 3)
Quarter: 2020Q1

REPORT INFORMATION
  Report Type: Spontaneous
  Country: US (occurrence: US)
  Receive Date: 20170630
  Receipt Date: 20200123
  Transmission Date: 20200409
  Serious: No
  Sender: FDA-Public Use
  Company Number: US-JNJFOC-20170616859

PATIENT
  Sex: Male
  Weight: 83.99 kg

DRUGS (4)
  1. RISPERDAL [Suspect]
     Active Substance: RISPERIDONE
     Indication: ANXIETY
     Route: 048
     Dates: start: 20090109
  2. RISPERDAL [Suspect]
     Active Substance: RISPERIDONE
     Indication: DISTURBANCE IN SOCIAL BEHAVIOUR
     Dosage: VARYING DOSES OF UNSPECIFIED, 01 MG AND 2 MG VARYING FREQUENCY (UNSPECIFIED FREQUENCY/TWICE DAILY/FO
     Route: 048
     Dates: start: 20060922, end: 20061120
  3. RISPERDAL [Suspect]
     Active Substance: RISPERIDONE
     Indication: ATTENTION DEFICIT/HYPERACTIVITY DISORDER
  4. RISPERDAL [Suspect]
     Active Substance: RISPERIDONE
     Indication: DELUSION

REACTIONS (2)
  - Emotional distress [Unknown]
  - Gynaecomastia [Unknown]
